FAERS Safety Report 9473779 (Version 1)
Quarter: 2013Q3

REPORT INFORMATION
  Report Type: Spontaneous
  Country: US (occurrence: US)
  Receive Date: 20130823
  Receipt Date: 20130823
  Transmission Date: 20140515
  Serious: No
  Sender: FDA-Public Use
  Company Number: US-BRISTOL-MYERS SQUIBB COMPANY-16978025

PATIENT
  Age: 70 Year
  Sex: Male

DRUGS (5)
  1. SPRYCEL [Suspect]
     Indication: LEUKAEMIA
     Dates: start: 20120905
  2. ASPIRIN [Concomitant]
  3. DIOVAN [Concomitant]
  4. LOPRESSOR [Concomitant]
  5. SIMVASTATIN [Concomitant]

REACTIONS (2)
  - Dyspnoea [Not Recovered/Not Resolved]
  - Pyrexia [Recovered/Resolved]
